FAERS Safety Report 15952015 (Version 1)
Quarter: 2019Q1

REPORT INFORMATION
  Report Type: Spontaneous
  Country: GB (occurrence: GB)
  Receive Date: 20190212
  Receipt Date: 20190212
  Transmission Date: 20190417
  Serious: Yes (Hospitalization, Other)
  Sender: FDA-Public Use
  Company Number: GB-PFIZER INC-2019055007

PATIENT
  Age: 68 Year
  Sex: Male
  Weight: 103 kg

DRUGS (4)
  1. CALCIUM FOLINATE [Suspect]
     Active Substance: LEUCOVORIN CALCIUM
     Indication: SMALL INTESTINE CARCINOMA STAGE III
     Dosage: 350 MG, UNK
     Route: 042
     Dates: start: 20190102
  2. IRINOTECAN HCL [Suspect]
     Active Substance: IRINOTECAN HYDROCHLORIDE
     Indication: SMALL INTESTINE CARCINOMA STAGE III
     Dosage: 240 MG, UNK
     Route: 042
     Dates: start: 20190102
  3. FLUOROURACIL. [Suspect]
     Active Substance: FLUOROURACIL
     Indication: SMALL INTESTINE CARCINOMA STAGE III
     Dosage: 4600 MG, UNK (650MG SYRINGE, 3950MG PUMO)
     Route: 042
     Dates: start: 20190102
  4. CETUXIMAB. [Suspect]
     Active Substance: CETUXIMAB
     Indication: SMALL INTESTINE CARCINOMA STAGE III
     Dosage: 1100 MG, UNK
     Route: 042
     Dates: start: 20190102

REACTIONS (3)
  - Acute kidney injury [Not Recovered/Not Resolved]
  - Gastrointestinal stoma complication [Unknown]
  - Nausea [Not Recovered/Not Resolved]

NARRATIVE: CASE EVENT DATE: 2019
